FAERS Safety Report 21335114 (Version 1)
Quarter: 2022Q3

REPORT INFORMATION
  Report Type: Spontaneous
  Country: MX (occurrence: MX)
  Receive Date: 20220914
  Receipt Date: 20220914
  Transmission Date: 20221027
  Serious: Yes (Death, Hospitalization, Other)
  Sender: FDA-Public Use
  Company Number: MX-ALVOGEN-2022-ALVOGEN-120848

PATIENT
  Age: 15 Year
  Sex: Female

DRUGS (2)
  1. VORICONAZOLE [Suspect]
     Active Substance: VORICONAZOLE
     Indication: Systemic mycosis
  2. AMPHOTERICIN B [Suspect]
     Active Substance: AMPHOTERICIN B
     Indication: Systemic mycosis

REACTIONS (3)
  - Systemic mycosis [Fatal]
  - Disseminated intravascular coagulation [Fatal]
  - Disease progression [Fatal]
